FAERS Safety Report 21022826 (Version 1)
Quarter: 2022Q2

REPORT INFORMATION
  Report Type: Spontaneous
  Country: CN (occurrence: CN)
  Receive Date: 20220629
  Receipt Date: 20220629
  Transmission Date: 20220721
  Serious: Yes (Other)
  Sender: FDA-Public Use
  Company Number: CN-PFIZER INC-PV202200009723

PATIENT
  Age: 50 Year
  Sex: Female
  Weight: 52 kg

DRUGS (2)
  1. LINEZOLID [Suspect]
     Active Substance: LINEZOLID
     Indication: Tuberculosis
     Dosage: 0.3 G, 1X/DAY
     Route: 048
     Dates: start: 20210930, end: 20220221
  2. LEVOFLOXACIN LACTATE [Suspect]
     Active Substance: LEVOFLOXACIN LACTATE
     Indication: Toxicity to various agents
     Dosage: 0.6 G, 1X/DAY
     Route: 048
     Dates: start: 20210930, end: 20220221

REACTIONS (3)
  - Neuropathy peripheral [Recovering/Resolving]
  - Arthralgia [Recovering/Resolving]
  - Off label use [Unknown]

NARRATIVE: CASE EVENT DATE: 20210930
